FAERS Safety Report 15366946 (Version 1)
Quarter: 2018Q3

REPORT INFORMATION
  Report Type: Spontaneous
  Country: HU (occurrence: HU)
  Receive Date: 20180910
  Receipt Date: 20180910
  Transmission Date: 20181010
  Serious: Yes (Hospitalization)
  Sender: FDA-Public Use
  Company Number: HU-VALIDUS PHARMACEUTICALS LLC-HU-2018VAL000898

PATIENT
  Age: 31 Year
  Sex: Female

DRUGS (7)
  1. METOPROLOL TARTRATE. [Suspect]
     Active Substance: METOPROLOL TARTRATE
     Indication: PRODUCT USED FOR UNKNOWN INDICATION
     Dosage: UNK
  2. PENTASA [Suspect]
     Active Substance: MESALAMINE
     Indication: CROHN^S DISEASE
     Dosage: 2000 MG, QD
     Route: 048
     Dates: start: 20170620, end: 20170720
  3. PANTOPRAZOLE [Concomitant]
     Active Substance: PANTOPRAZOLE
     Indication: PRODUCT USED FOR UNKNOWN INDICATION
     Dosage: UNK
  4. PENTASA [Suspect]
     Active Substance: MESALAMINE
     Dosage: 4000 MG, UNK
     Route: 048
     Dates: start: 20170805, end: 20170806
  5. METHYLPREDNISOLONE. [Concomitant]
     Active Substance: METHYLPREDNISOLONE
     Indication: CROHN^S DISEASE
     Dosage: UNK
     Dates: start: 20170720
  6. POTASSIUM CHLORIDE. [Concomitant]
     Active Substance: POTASSIUM CHLORIDE
     Indication: PRODUCT USED FOR UNKNOWN INDICATION
     Dosage: INTERMITTENTLY
  7. PENTASA [Suspect]
     Active Substance: MESALAMINE
     Dosage: 4000 MG, UNK
     Route: 048
     Dates: start: 20170724, end: 20170802

REACTIONS (1)
  - Pancreatitis acute [Recovered/Resolved]
